FAERS Safety Report 9343843 (Version 3)
Quarter: 2013Q3

REPORT INFORMATION
  Report Type: Spontaneous
  Country: GB (occurrence: None)
  Receive Date: 20130610
  Receipt Date: 20130924
  Transmission Date: 20140515
  Serious: Yes (Other)
  Sender: FDA-Public Use
  Company Number: SYM-2013-04345

PATIENT
  Age: 74 Year
  Sex: Male

DRUGS (3)
  1. DILTIAZEM [Suspect]
     Indication: PRODUCT USED FOR UNKNOWN INDICATION
     Dosage: 60MG, 1 IN 1D
     Dates: start: 201304, end: 201305
  2. BISOPROLOL (BISOPROLOL) [Suspect]
     Indication: CARDIAC DISORDER
     Dates: start: 20130214
  3. VITAMINS (VITAMINS NOS) (VITAMINS NOS) [Concomitant]

REACTIONS (3)
  - Cutaneous lupus erythematosus [None]
  - Photosensitivity reaction [None]
  - Drug hypersensitivity [None]
